FAERS Safety Report 9324458 (Version 1)
Quarter: 2013Q2

REPORT INFORMATION
  Report Type: Spontaneous
  Country: US (occurrence: None)
  Receive Date: 20130531
  Receipt Date: 20130531
  Transmission Date: 20140414
  Serious: Yes (Death, Hospitalization, Disabling)
  Sender: FDA-Public Use
  Company Number: None

PATIENT
  Age: 88 Year
  Sex: Male
  Weight: 82.1 kg

DRUGS (7)
  1. XARELTO 15 MG JANSSEN [Suspect]
     Indication: DEEP VEIN THROMBOSIS
     Route: 048
     Dates: start: 20130301, end: 20130316
  2. DOCUSATE [Concomitant]
  3. VICODIN [Concomitant]
  4. IMODIUM [Concomitant]
  5. ALLEGRA [Concomitant]
  6. FUROSEMIDE [Concomitant]
  7. POTASSIUM CHLORIDE [Concomitant]

REACTIONS (3)
  - Fall [None]
  - Haematoma [None]
  - Cerebral infarction [None]
